FAERS Safety Report 5671050-2 (Version None)
Quarter: 2008Q1

REPORT INFORMATION
  Report Type: 
  Country: None (occurrence: None)
  Receive Date: 20080318
  Receipt Date: 20080306
  Transmission Date: 20080703
  Serious: Yes (Other)
  Sender: FDA-Public Use
  Company Number: US-WYE-H02399808

PATIENT
  Sex: Male
  Weight: 18.2 kg

DRUGS (4)
  1. BENEFIX [Suspect]
     Indication: FACTOR IX DEFICIENCY
     Dosage: 44 IU/KG TWICE WEEKLY ALSO REPORTED AS 750 IU TWICE WEEKLY, AS ROUTINE TREATMENT
     Route: 042
     Dates: end: 20071223
  2. BENEFIX [Suspect]
     Route: 042
     Dates: start: 20071223
  3. OXYCODONE HCL AND ACETAMINOPHEN [Suspect]
     Indication: THERMAL BURN
     Dosage: DOSE NOT SPECIFIED
     Route: 065
     Dates: start: 20071223, end: 20071223
  4. AMINOCAPROIC ACID [Concomitant]
     Dosage: DOSE AND FREQUENCT NOT PROVIDED
     Route: 065

REACTIONS (7)
  - CHILLS [None]
  - COUGH [None]
  - FACTOR IX INHIBITION [None]
  - HYPERSENSITIVITY [None]
  - PYREXIA [None]
  - TACHYPNOEA [None]
  - VOMITING [None]
